FAERS Safety Report 21068606 (Version 1)
Quarter: 2022Q3

REPORT INFORMATION
  Report Type: Spontaneous
  Country: US (occurrence: None)
  Receive Date: 20220711
  Receipt Date: 20220711
  Transmission Date: 20221026
  Serious: No
  Sender: FDA-Public Use
  Company Number: None

PATIENT
  Sex: Male

DRUGS (1)
  1. HUMIRA [Suspect]
     Active Substance: ADALIMUMAB
     Indication: Psoriasis
     Dosage: OTHER FREQUENCY : EVERY14DAYS ;?
     Route: 042
     Dates: start: 20220301

REACTIONS (7)
  - Influenza like illness [None]
  - Ear pruritus [None]
  - Ear haemorrhage [None]
  - Skin haemorrhage [None]
  - Skin exfoliation [None]
  - Dry skin [None]
  - Pruritus [None]
